FAERS Safety Report 10582080 (Version 2)
Quarter: 2014Q4

REPORT INFORMATION
  Report Type: Spontaneous
  Country: US (occurrence: US)
  Receive Date: 20141113
  Receipt Date: 20141124
  Transmission Date: 20150529
  Serious: Yes (Hospitalization)
  Sender: FDA-Public Use
  Company Number: PHHY2014US146174

PATIENT
  Age: 56 Year
  Sex: Female

DRUGS (2)
  1. HEPARIN [Suspect]
     Active Substance: HEPARIN SODIUM
     Indication: THROMBOSIS PROPHYLAXIS
     Route: 065
  2. HEPARIN [Suspect]
     Active Substance: HEPARIN SODIUM
     Route: 041

REACTIONS (3)
  - Heparin-induced thrombocytopenia [Recovering/Resolving]
  - Respiratory failure [Recovering/Resolving]
  - Pulmonary embolism [Recovering/Resolving]
